FAERS Safety Report 21047158 (Version 1)
Quarter: 2022Q3

REPORT INFORMATION
  Report Type: Spontaneous
  Country: US (occurrence: None)
  Receive Date: 20220705
  Receipt Date: 20220705
  Transmission Date: 20221026
  Serious: No
  Sender: FDA-Public Use
  Company Number: None

PATIENT
  Sex: Female

DRUGS (7)
  1. KITABIS PAK [Suspect]
     Active Substance: TOBRAMYCIN
     Indication: Cystic fibrosis
     Dosage: 300MG/5ML ? INHALE CONTENTS OF 1 VIAL (5 ML) VIA NEBULIZER TWICE DAILY CONTINUOUSLY
     Route: 055
     Dates: start: 20201027
  2. CLOTRIMAZOLE CRE [Concomitant]
  3. CREON CAP [Concomitant]
  4. HYDROCORT CRE [Concomitant]
  5. NYSTATIN [Concomitant]
     Active Substance: NYSTATIN
  6. PULMOZYME SOL [Concomitant]
  7. SODIUM CHLOR NEB [Concomitant]

REACTIONS (1)
  - Off label use [None]
